FAERS Safety Report 6326474-7 (Version None)
Quarter: 2009Q3

REPORT INFORMATION
  Report Type: 
  Country: None (occurrence: None)
  Receive Date: 20090821
  Receipt Date: 20090804
  Transmission Date: 20100115
  Serious: Yes (Other)
  Sender: FDA-Public Use
  Company Number: B0588751B

PATIENT
  Sex: Male
  Weight: 1.5876 kg

DRUGS (8)
  1. METHADONE HCL [Suspect]
     Indication: DRUG USE FOR UNKNOWN INDICATION
     Dosage: TRANSPLACENTARY
     Route: 064
  2. AMOXICILLIN TRIHYDRATE [Suspect]
     Indication: DRUG USE FOR UNKNOWN INDICATION
     Dosage: TRANSPLACENTARY
     Route: 064
  3. NIFEDIPINE [Suspect]
     Indication: DRUG USE FOR UNKNOWN INDICATION
     Dosage: TRANSPLACENTARY
     Route: 064
  4. TAMOXIFEN (FORMULATION UNKNOWN) (TAMOXIFEN) [Suspect]
     Indication: DRUG USE FOR UNKNOWN INDICATION
     Dosage: TRANSPLACENTARY
     Route: 064
  5. TRASTUZUMAB (FORMULATION UNKNOWN) (TRASTUZUMAB) [Suspect]
     Indication: DRUG USE FOR UNKNOWN INDICATION
     Dosage: TRANSPLACENTARY
     Route: 064
  6. DOXORUBICIN HCL [Suspect]
     Indication: DRUG USE FOR UNKNOWN INDICATION
     Dosage: TRANSPLACENTARY
     Route: 064
  7. CYCLOPHOSPHAMIDE [Suspect]
     Indication: DRUG USE FOR UNKNOWN INDICATION
     Dosage: TRANSPLACENTARY
     Route: 064
  8. STEROID (FORMULATION UNKNOWN) (STEROID) [Suspect]
     Dosage: TRANSPLACENTARY
     Route: 064

REACTIONS (9)
  - APGAR SCORE LOW [None]
  - ASPIRATION [None]
  - LUNG DISORDER [None]
  - MATERNAL DRUGS AFFECTING FOETUS [None]
  - RENAL FAILURE CHRONIC [None]
  - RENAL FAILURE NEONATAL [None]
  - RESPIRATORY ARREST [None]
  - RESPIRATORY DISORDER NEONATAL [None]
  - SMALL FOR DATES BABY [None]
